FAERS Safety Report 7816704-4 (Version None)
Quarter: 2011Q4

REPORT INFORMATION
  Report Type: 
  Country: None (occurrence: None)
  Receive Date: 20111017
  Receipt Date: 20111012
  Transmission Date: 20120403
  Serious: No
  Sender: FDA-Public Use
  Company Number: US-PFIZER INC-2009272578

PATIENT
  Age: 55 Year
  Sex: Male

DRUGS (3)
  1. ACCUPRIL [Suspect]
     Indication: HYPERTENSION
  2. VALSARTAN [Suspect]
  3. TOPROL-XL [Suspect]
     Indication: HYPERTENSION

REACTIONS (2)
  - MEMORY IMPAIRMENT [None]
  - HYPERTENSION [None]
